FAERS Safety Report 8756247 (Version 1)
Quarter: 2012Q4

REPORT INFORMATION
  Report Type: 
  Country: DE (occurrence: DE)
  Receive Date: 20120828
  Receipt Date: 20120828
  Transmission Date: 20130627
  Serious: Yes (Other)
  Sender: FDA-Public Use
  Company Number: PHHY2012DE073275

PATIENT
  Sex: Female

DRUGS (3)
  1. EXFORGE [Suspect]
  2. AMITRIPTYLINE [Suspect]
     Indication: BREAST CANCER
  3. TORASEMIDE [Concomitant]

REACTIONS (3)
  - Autoimmune disorder [Unknown]
  - Skin depigmentation [Not Recovered/Not Resolved]
  - Oedema peripheral [Recovering/Resolving]
